FAERS Safety Report 15622099 (Version 1)
Quarter: 2018Q4

REPORT INFORMATION
  Report Type: Spontaneous
  Country: PK (occurrence: PK)
  Receive Date: 20181115
  Receipt Date: 20181115
  Transmission Date: 20190205
  Serious: Yes (Other)
  Sender: FDA-Public Use
  Company Number: PHHY2018PK153255

PATIENT

DRUGS (1)
  1. CO-DIOVAN [Suspect]
     Active Substance: HYDROCHLOROTHIAZIDE\VALSARTAN
     Indication: BLOOD PRESSURE MEASUREMENT
     Dosage: 160 MG, QD (VALSARTAN: 160 MG AND HYDROCHLOROTHIAZIDE: 12.5 MG)
     Route: 048
     Dates: start: 20100101

REACTIONS (1)
  - Adenocarcinoma of colon [Unknown]
